FAERS Safety Report 14477015 (Version 1)
Quarter: 2018Q1

REPORT INFORMATION
  Report Type: Report from Study
  Country: US (occurrence: US)
  Receive Date: 20180201
  Receipt Date: 20180201
  Transmission Date: 20180509
  Serious: No
  Sender: FDA-Public Use
  Company Number: US-EXELIXIS-CABO-17008899

PATIENT
  Age: 43 Year
  Sex: Female

DRUGS (5)
  1. COMETRIQ [Suspect]
     Active Substance: CABOZANTINIB S-MALATE
     Indication: RENAL CANCER
     Dosage: 60 MG, QD
     Route: 048
     Dates: start: 20170217
  2. DEXAMETHASONE. [Concomitant]
     Active Substance: DEXAMETHASONE
  3. MULTIVITAMIN [Concomitant]
     Active Substance: VITAMINS
  4. FAMOTIDINE. [Concomitant]
     Active Substance: FAMOTIDINE
  5. OXYCODONE [Concomitant]
     Active Substance: OXYCODONE

REACTIONS (2)
  - Off label use [Unknown]
  - Radiotherapy [Unknown]

NARRATIVE: CASE EVENT DATE: 201702
